FAERS Safety Report 7979361-2 (Version None)
Quarter: 2011Q4

REPORT INFORMATION
  Report Type: 
  Country: None (occurrence: None)
  Receive Date: 20111213
  Receipt Date: 20111213
  Transmission Date: 20120403
  Serious: Yes (Hospitalization)
  Sender: FDA-Public Use
  Company Number: None

PATIENT
  Age: 64 Year
  Sex: Male
  Weight: 72.8 kg

DRUGS (2)
  1. MIRTAZAPINE [Suspect]
     Indication: ANXIETY
     Dosage: 15 MG EVERY DAY PO
     Route: 048
     Dates: start: 20110803, end: 20111116
  2. MIRTAZAPINE [Suspect]
     Indication: DEPRESSION
     Dosage: 15 MG EVERY DAY PO
     Route: 048
     Dates: start: 20110803, end: 20111116

REACTIONS (1)
  - MENTAL STATUS CHANGES [None]
